FAERS Safety Report 13109213 (Version 1)
Quarter: 2017Q1

REPORT INFORMATION
  Report Type: Spontaneous
  Country: US (occurrence: US)
  Receive Date: 20170112
  Receipt Date: 20170112
  Transmission Date: 20170428
  Serious: Yes (Hospitalization, Disabling)
  Sender: FDA-Public Use
  Company Number: US-TEVA-727426USA

PATIENT
  Sex: Female

DRUGS (2)
  1. CIPROFLOXACIN. [Suspect]
     Active Substance: CIPROFLOXACIN
     Route: 065
  2. CIPRO [Suspect]
     Active Substance: CIPROFLOXACIN HYDROCHLORIDE
     Route: 065

REACTIONS (16)
  - Hypoacusis [Unknown]
  - Skin disorder [Unknown]
  - Dysstasia [Unknown]
  - Neuropathy peripheral [Unknown]
  - Pain [Unknown]
  - Neuropsychiatric symptoms [Unknown]
  - Visual impairment [Unknown]
  - Hypoaesthesia [Unknown]
  - Musculoskeletal disorder [Unknown]
  - Gait disturbance [Unknown]
  - Burning sensation [Unknown]
  - Paraesthesia [Unknown]
  - Nerve injury [Unknown]
  - Sensory disturbance [Unknown]
  - Asthenia [Unknown]
  - Cardiovascular disorder [Unknown]
